FAERS Safety Report 9471712 (Version 1)
Quarter: 2013Q3

REPORT INFORMATION
  Report Type: Spontaneous
  Country: None (occurrence: US)
  Receive Date: 20130822
  Receipt Date: 20130822
  Transmission Date: 20140515
  Serious: No
  Sender: FDA-Public Use
  Company Number: US-TEVA-428083USA

PATIENT
  Sex: 0

DRUGS (1)
  1. QNASL [Suspect]
     Route: 045

REACTIONS (1)
  - Nasal ulcer [Recovered/Resolved]
